FAERS Safety Report 6403962-6 (Version None)
Quarter: 2009Q4

REPORT INFORMATION
  Report Type: 
  Country: None (occurrence: None)
  Receive Date: 20091016
  Receipt Date: 20090702
  Transmission Date: 20100525
  Serious: No
  Sender: FDA-Public Use
  Company Number: US-ALEXION-A200900544

PATIENT
  Sex: Female

DRUGS (18)
  1. SOLIRIS [Suspect]
     Indication: PAROXYSMAL NOCTURNAL HAEMOGLOBINURIA
     Dosage: 600 MG, QW
     Route: 042
     Dates: start: 20070604, end: 20070625
  2. SOLIRIS [Suspect]
     Dosage: 900 MG, Q2W
     Route: 042
     Dates: start: 20070709
  3. TYLENOL (CAPLET) [Concomitant]
     Indication: PREMEDICATION
  4. FOLIC ACID [Concomitant]
     Dosage: 1 MG, QD
     Route: 048
  5. NITROGLYCERIN [Concomitant]
     Dosage: 4 MG, PRN
     Route: 045
  6. TOPROL-XL [Concomitant]
     Dosage: 25 MG, QD
     Route: 048
  7. LEXAPRO [Concomitant]
     Dosage: 10 MG, QD
     Route: 048
  8. MIRALAX [Concomitant]
     Indication: CONSTIPATION
     Dosage: 17 G, PRN
     Route: 048
  9. CALTRATE                           /00108001/ [Concomitant]
     Dosage: 600 MG, QD
     Route: 048
  10. COLACE [Concomitant]
     Dosage: UNK
     Route: 048
  11. MIRAPEX [Concomitant]
     Indication: RESTLESS LEGS SYNDROME
     Dosage: 0.5 MG, TID
     Route: 048
  12. ZOCOR [Concomitant]
     Dosage: 10 MG, UNK
     Route: 048
  13. PREVACID [Concomitant]
     Dosage: 30 MG, UNK
     Route: 048
  14. EXJADE [Concomitant]
     Dosage: 625 MG, UNK
     Route: 048
  15. ASPIRIN [Concomitant]
     Dosage: 25 MG, QD
     Route: 048
  16. ARANESP [Concomitant]
     Dosage: 100 UG, Q2W
  17. EXELON                             /01383201/ [Concomitant]
     Dosage: UNK
     Route: 062
  18. NAMENDA [Concomitant]
     Dosage: UNK
     Route: 048

REACTIONS (3)
  - HAEMOGLOBIN DECREASED [None]
  - INFECTION [None]
  - PYREXIA [None]
